FAERS Safety Report 10247038 (Version 2)
Quarter: 2014Q2

REPORT INFORMATION
  Report Type: Spontaneous
  Country: US (occurrence: US)
  Receive Date: 20140619
  Receipt Date: 20140623
  Transmission Date: 20141212
  Serious: Yes (Other)
  Sender: FDA-Public Use
  Company Number: US-SA-2014SA078895

PATIENT
  Age: 45 Year
  Sex: Female
  Weight: 80.28 kg

DRUGS (20)
  1. AUBAGIO [Suspect]
     Indication: MULTIPLE SCLEROSIS
     Route: 048
     Dates: start: 20140530
  2. ADVAIR [Concomitant]
     Indication: SEASONAL ALLERGY
  3. PRO-AIR [Concomitant]
     Indication: SEASONAL ALLERGY
  4. MIDODRINE [Concomitant]
  5. PRISTIQ [Concomitant]
  6. LEVOTHYROXINE [Concomitant]
  7. BACLOFEN [Concomitant]
  8. ELIQUIS [Concomitant]
  9. CLONAZEPAM [Concomitant]
  10. TESTOSTERONE [Concomitant]
  11. NEXIUM [Concomitant]
  12. LOVAZA [Concomitant]
  13. CALCIUM CITRATE [Concomitant]
  14. B COMPLEX [Concomitant]
  15. VICTOZA [Concomitant]
  16. FOLIC ACID [Concomitant]
  17. ERGOCALCIFEROL [Concomitant]
     Dosage: DOSE:50.000 UNIT(S)
  18. VITAMIN C [Concomitant]
  19. COENZYME Q10 [Concomitant]
  20. MAGNESIUM OXIDE [Concomitant]

REACTIONS (5)
  - Chest discomfort [Not Recovered/Not Resolved]
  - Dyspnoea [Not Recovered/Not Resolved]
  - Hyperhidrosis [Not Recovered/Not Resolved]
  - Hypotension [Not Recovered/Not Resolved]
  - Feeling abnormal [Unknown]
